FAERS Safety Report 12411066 (Version 2)
Quarter: 2016Q3

REPORT INFORMATION
  Report Type: Spontaneous
  Country: DE (occurrence: DE)
  Receive Date: 20160527
  Receipt Date: 20160731
  Transmission Date: 20161109
  Serious: Yes (Hospitalization)
  Sender: FDA-Public Use
  Company Number: DE-BEH-2016063028

PATIENT
  Sex: Female

DRUGS (1)
  1. DESMOPRESSIN ACETATE. [Suspect]
     Active Substance: DESMOPRESSIN ACETATE
     Indication: VON WILLEBRAND^S DISEASE
     Route: 045

REACTIONS (4)
  - Spinal compression fracture [Recovering/Resolving]
  - Hyponatraemia [Recovered/Resolved]
  - Intervertebral disc disorder [Recovering/Resolving]
  - Epilepsy [Recovered/Resolved]
